FAERS Safety Report 11880088 (Version 2)
Quarter: 2017Q1

REPORT INFORMATION
  Report Type: Report from Study
  Country: TW (occurrence: TW)
  Receive Date: 20151230
  Receipt Date: 20170109
  Transmission Date: 20170428
  Serious: Yes (Other)
  Sender: FDA-Public Use
  Company Number: TW-MYLANLABS-2015M1047577

PATIENT

DRUGS (1)
  1. KETAMINE [Suspect]
     Active Substance: KETAMINE
     Indication: PRODUCT USED FOR UNKNOWN INDICATION
     Dosage: 4 G/DAY
     Route: 055

REACTIONS (3)
  - Hydronephrosis [Recovering/Resolving]
  - Acute kidney injury [Recovering/Resolving]
  - Drug abuse [Unknown]
